FAERS Safety Report 15575360 (Version 1)
Quarter: 2018Q4

REPORT INFORMATION
  Report Type: Spontaneous
  Country: US (occurrence: US)
  Receive Date: 20181029
  Receipt Date: 20181029
  Transmission Date: 20190205
  Serious: Yes (Hospitalization)
  Sender: FDA-Public Use
  Company Number: None

PATIENT
  Age: 77 Year
  Sex: Male

DRUGS (19)
  1. CARDURA [Concomitant]
     Active Substance: DOXAZOSIN MESYLATE
  2. FINASTERIDE. [Concomitant]
     Active Substance: FINASTERIDE
  3. VITAMIN D [Concomitant]
     Active Substance: CHOLECALCIFEROL
  4. GENTAMICIN. [Concomitant]
     Active Substance: GENTAMICIN
  5. IRON [Concomitant]
     Active Substance: IRON
  6. VITAMIN D3 [Concomitant]
     Active Substance: CHOLECALCIFEROL
  7. ALLOPURINOL. [Concomitant]
     Active Substance: ALLOPURINOL
  8. AMLODIPINE [Concomitant]
     Active Substance: AMLODIPINE BESYLATE
  9. ATORVASTATIN [Concomitant]
     Active Substance: ATORVASTATIN
  10. TRUPLUS [Concomitant]
  11. BOSULIF [Suspect]
     Active Substance: BOSUTINIB MONOHYDRATE
     Indication: CHRONIC MYELOID LEUKAEMIA
     Route: 048
     Dates: start: 20150602
  12. CALCIUM [Concomitant]
     Active Substance: CALCIUM
  13. LASIX [Concomitant]
     Active Substance: FUROSEMIDE
  14. SODIUM [Concomitant]
     Active Substance: SODIUM
  15. SODIUM BICAR [Concomitant]
  16. ROSUVASTATIN. [Concomitant]
     Active Substance: ROSUVASTATIN
  17. CLOPIDOGREL [Concomitant]
     Active Substance: CLOPIDOGREL BISULFATE
  18. DOXAZOSIN [Concomitant]
     Active Substance: DOXAZOSIN\DOXAZOSIN MESYLATE
  19. EPOGEN [Concomitant]
     Active Substance: ERYTHROPOIETIN

REACTIONS (4)
  - Intentional dose omission [None]
  - Anaemia [None]
  - Dyspnoea [None]
  - Renal disorder [None]
